FAERS Safety Report 23972980 (Version 1)
Quarter: 2024Q2

REPORT INFORMATION
  Report Type: Spontaneous
  Country: HU (occurrence: HU)
  Receive Date: 20240613
  Receipt Date: 20240613
  Transmission Date: 20240716
  Serious: Yes (Life-Threatening)
  Sender: FDA-Public Use
  Company Number: None

PATIENT
  Age: 87 Year
  Sex: Female
  Weight: 50 kg

DRUGS (5)
  1. PIPERACILLIN SODIUM\TAZOBACTAM SODIUM [Suspect]
     Active Substance: PIPERACILLIN SODIUM\TAZOBACTAM SODIUM
     Indication: Pneumonia
     Dosage: FORM OF ADMIN.- POWDER FOR SOLUTION FOR INJECTION/INFUSION
     Route: 042
     Dates: start: 20240426, end: 20240511
  2. SODIUM CHLORATE [Concomitant]
     Active Substance: SODIUM CHLORATE
     Indication: Product used for unknown indication
     Dosage: FORM OF ADMIN.- SOLUTION FOR INJECTION
  3. PANTOPRAZOLE SODIUM [Concomitant]
     Active Substance: PANTOPRAZOLE SODIUM
     Indication: Product used for unknown indication
     Dosage: FORM OF ADMIN.- GASTRO-RESISTANT TABLET
     Route: 048
  4. ASA KRKA [Concomitant]
     Indication: Product used for unknown indication
     Dosage: FORM OF ADMIN.- GASTRO-RESISTANT TABLET
  5. ENOXAPARIN SODIUM [Concomitant]
     Active Substance: ENOXAPARIN SODIUM
     Indication: Product used for unknown indication
     Dosage: FORM OF ADMIN.- SOLUTION FOR INJECTION IN PRE-FILLED SYRINGE

REACTIONS (1)
  - SJS-TEN overlap [Recovering/Resolving]

NARRATIVE: CASE EVENT DATE: 20240509
